FAERS Safety Report 8587596-3 (Version None)
Quarter: 2012Q3

REPORT INFORMATION
  Report Type: 
  Country: None (occurrence: None)
  Receive Date: 20120810
  Receipt Date: 20090826
  Transmission Date: 20120928
  Serious: Yes (Death, Hospitalization, Other)
  Sender: FDA-Public Use
  Company Number: PHHY2009KH070708

PATIENT
  Sex: Male

DRUGS (2)
  1. IMATINIB MESYLATE [Suspect]
     Dates: start: 20070829
  2. IMATINIB MESYLATE [Suspect]
     Dosage: 600 MG, UNK

REACTIONS (8)
  - HAEMORRHAGIC STROKE [None]
  - APHASIA [None]
  - PLATELET COUNT DECREASED [None]
  - BLAST CRISIS IN MYELOGENOUS LEUKAEMIA [None]
  - GENERAL PHYSICAL HEALTH DETERIORATION [None]
  - SYNCOPE [None]
  - WHITE BLOOD CELL COUNT INCREASED [None]
  - HAEMOGLOBIN DECREASED [None]
